FAERS Safety Report 7817000-1 (Version None)
Quarter: 2011Q4

REPORT INFORMATION
  Report Type: 
  Country: None (occurrence: None)
  Receive Date: 20111013
  Receipt Date: 20110927
  Transmission Date: 20120403
  Serious: Yes (Life-Threatening, Hospitalization, Disabling, Other)
  Sender: FDA-Public Use
  Company Number: CRC-11-240

PATIENT
  Age: 60 Year
  Sex: Female

DRUGS (4)
  1. ASPIRIN [Concomitant]
  2. METOPROLOL TARTRATE [Concomitant]
  3. AMLODIPINE [Suspect]
     Indication: HYPERTENSION
     Dosage: 10 MG TWICE DAILY; ORAL
     Route: 048
  4. NIFEDIPINE [Concomitant]

REACTIONS (6)
  - FAECALOMA [None]
  - SELF-MEDICATION [None]
  - ILEUS PARALYTIC [None]
  - TOXICITY TO VARIOUS AGENTS [None]
  - HYPOTENSION [None]
  - SMALL INTESTINAL OBSTRUCTION [None]
